FAERS Safety Report 21858971 (Version 1)
Quarter: 2023Q1

REPORT INFORMATION
  Report Type: Report from Study
  Country: JP (occurrence: JP)
  Receive Date: 20230113
  Receipt Date: 20230113
  Transmission Date: 20230417
  Serious: Yes (Other)
  Sender: FDA-Public Use
  Company Number: JP-TAKEDA-2023TUS004091

PATIENT
  Age: 9 Year
  Sex: Male

DRUGS (5)
  1. LISDEXAMFETAMINE DIMESYLATE [Suspect]
     Active Substance: LISDEXAMFETAMINE DIMESYLATE
     Indication: Attention deficit hyperactivity disorder
     Dosage: 20 MILLIGRAM, QD
     Route: 048
     Dates: start: 20201223, end: 20210518
  2. LISDEXAMFETAMINE DIMESYLATE [Suspect]
     Active Substance: LISDEXAMFETAMINE DIMESYLATE
     Dosage: 30 MILLIGRAM, QD
     Route: 048
     Dates: start: 20210519
  3. RISPERDAL [Concomitant]
     Active Substance: RISPERIDONE
     Dosage: 0.3 MILLIGRAM, QD
     Route: 065
     Dates: end: 20220206
  4. RISPERDAL [Concomitant]
     Active Substance: RISPERIDONE
     Dosage: 0.4 MILLIGRAM, QD
     Route: 065
     Dates: start: 20220207
  5. MOSAPRIDE CITRATE [Concomitant]
     Active Substance: MOSAPRIDE CITRATE
     Dosage: 5 MILLIGRAM, QD
     Route: 065

REACTIONS (1)
  - Autism spectrum disorder [Recovering/Resolving]

NARRATIVE: CASE EVENT DATE: 20220201
